FAERS Safety Report 6842421-3 (Version None)
Quarter: 2010Q3

REPORT INFORMATION
  Report Type: 
  Country: None (occurrence: None)
  Receive Date: 20100714
  Receipt Date: 20080211
  Transmission Date: 20110219
  Serious: Yes (Other)
  Sender: FDA-Public Use
  Company Number: US-PFIZER INC-2007062287

PATIENT
  Sex: Male
  Weight: 113.4 kg

DRUGS (2)
  1. CHANTIX [Suspect]
     Indication: SMOKING CESSATION THERAPY
     Dates: start: 20070701, end: 20070101
  2. DOXEPIN HCL [Concomitant]

REACTIONS (7)
  - AGITATION [None]
  - DEPRESSION [None]
  - DRUG INEFFECTIVE [None]
  - EMOTIONAL DISORDER [None]
  - INDIFFERENCE [None]
  - NERVOUSNESS [None]
  - TOBACCO WITHDRAWAL SYMPTOMS [None]
